FAERS Safety Report 6106906-X (Version None)
Quarter: 2009Q1

REPORT INFORMATION
  Report Type: 
  Country: None (occurrence: None)
  Receive Date: 20090303
  Receipt Date: 20090219
  Transmission Date: 20090719
  Serious: Yes (Other)
  Sender: FDA-Public Use
  Company Number: 2009AP000614

PATIENT
  Age: 37 Year
  Sex: Female

DRUGS (7)
  1. PAROXETINE HCL [Suspect]
     Indication: DEPRESSED MOOD
     Dosage: 20 MG; QD
     Dates: end: 20021015
  2. PAROXETINE HCL [Suspect]
     Indication: DEPRESSED MOOD
     Dosage: 20 MG; QD
     Dates: start: 19970429
  3. PAROXETINE HCL [Suspect]
     Indication: DEPRESSED MOOD
     Dosage: 20 MG; QD
     Dates: start: 19970924
  4. PAROXETINE HCL [Suspect]
     Indication: DEPRESSED MOOD
     Dosage: 20 MG; QD
     Dates: start: 20000907
  5. DIAZEPAM [Concomitant]
  6. PROPRANOLOL [Concomitant]
  7. VITAMINS NOS (VITAMINS NOS) [Concomitant]

REACTIONS (21)
  - ALCOHOL ABUSE [None]
  - ALCOHOL WITHDRAWAL SYNDROME [None]
  - ANXIETY [None]
  - CARDIAC FAILURE [None]
  - CONGESTIVE CARDIOMYOPATHY [None]
  - DEPRESSED MOOD [None]
  - DIZZINESS [None]
  - DRUG EXPOSURE DURING PREGNANCY [None]
  - HAEMORRHAGE [None]
  - HYPERCHOLESTEROLAEMIA [None]
  - HYPERTENSION [None]
  - NAUSEA [None]
  - OBESITY [None]
  - PANIC ATTACK [None]
  - PARANOIA [None]
  - PHOTOSENSITIVITY REACTION [None]
  - PREGNANCY [None]
  - PURPURA [None]
  - SLEEP DISORDER [None]
  - SUICIDAL IDEATION [None]
  - WITHDRAWAL SYNDROME [None]
